FAERS Safety Report 11595162 (Version 1)
Quarter: 2015Q4

REPORT INFORMATION
  Report Type: Spontaneous
  Country: BR (occurrence: BR)
  Receive Date: 20151006
  Receipt Date: 20151006
  Transmission Date: 20160304
  Serious: Yes (Hospitalization, Other)
  Sender: FDA-Public Use
  Company Number: BR-ASTRAZENECA-2015SE93913

PATIENT
  Age: 14634 Day
  Sex: Male
  Weight: 62 kg

DRUGS (7)
  1. OMEPRAZOLE. [Suspect]
     Active Substance: OMEPRAZOLE
     Indication: GASTRITIS
     Route: 048
     Dates: start: 2009
  2. ASA [Concomitant]
     Active Substance: ASPIRIN
     Indication: THROMBOSIS PROPHYLAXIS
     Dosage: EVERY DAY
     Route: 048
     Dates: start: 2007, end: 20150926
  3. EUTHYROX [Concomitant]
     Active Substance: LEVOTHYROXINE SODIUM
     Indication: HYPOTHYROIDISM
     Route: 048
     Dates: start: 201508
  4. SELOZOK [Suspect]
     Active Substance: METOPROLOL SUCCINATE
     Indication: ARRHYTHMIA
     Route: 048
     Dates: start: 201508
  5. AMIODARONE [Suspect]
     Active Substance: AMIODARONE
     Indication: CARDIAC PACEMAKER REPLACEMENT
     Route: 048
     Dates: start: 201508
  6. ATENOLOL. [Suspect]
     Active Substance: ATENOLOL
     Indication: HEART RATE DECREASED
     Dosage: 75 MG, DAILY (50 MG IN THE MORNING AND 25 MG AT NIGHT)
     Route: 048
     Dates: start: 2013, end: 201507
  7. SELOZOK [Suspect]
     Active Substance: METOPROLOL SUCCINATE
     Indication: HEART RATE DECREASED
     Route: 048
     Dates: start: 201508

REACTIONS (4)
  - Syncope [Recovered/Resolved]
  - Atrial fibrillation [Unknown]
  - Hypothyroidism [Unknown]
  - Arrhythmia [Recovered/Resolved]

NARRATIVE: CASE EVENT DATE: 20150605
